FAERS Safety Report 7079055-4 (Version None)
Quarter: 2010Q4

REPORT INFORMATION
  Report Type: 
  Country: None (occurrence: None)
  Receive Date: 20101021
  Receipt Date: 20101006
  Transmission Date: 20110411
  Serious: Yes (Hospitalization)
  Sender: FDA-Public Use
  Company Number: 2010MA003362

PATIENT
  Age: 5 Month
  Sex: Female

DRUGS (1)
  1. BETAMETHASONE DIPROPIONATE [Suspect]
     Indication: HAEMANGIOMA
     Dosage: 2 MG/KG;QD;PO
     Route: 048

REACTIONS (7)
  - CRYING [None]
  - CUSHING'S SYNDROME [None]
  - DECREASED APPETITE [None]
  - OESOPHAGITIS [None]
  - PNEUMOCYSTIS JIROVECI PNEUMONIA [None]
  - RESPIRATORY DISTRESS [None]
  - VOMITING [None]
